FAERS Safety Report 20778417 (Version 2)
Quarter: 2022Q2

REPORT INFORMATION
  Report Type: Spontaneous
  Country: US (occurrence: US)
  Receive Date: 20220503
  Receipt Date: 20220609
  Transmission Date: 20220720
  Serious: Yes (Hospitalization, Other)
  Sender: FDA-Public Use
  Company Number: US-BRISTOL-MYERS SQUIBB COMPANY-BMS-2021-030479

PATIENT
  Age: 82 Year
  Sex: Female
  Weight: 56.7 kg

DRUGS (10)
  1. ELIQUIS [Suspect]
     Active Substance: APIXABAN
     Dosage: UNK
     Route: 065
  2. DILTIAZEM HYDROCHLORIDE [Suspect]
     Active Substance: DILTIAZEM HYDROCHLORIDE
     Dosage: UNKNOWN
     Route: 065
  3. TYVASO [Suspect]
     Active Substance: TREPROSTINIL
     Indication: Pulmonary arterial hypertension
     Dosage: INHALATION18-54 UG, QID
     Dates: start: 20210127
  4. TYVASO [Suspect]
     Active Substance: TREPROSTINIL
     Dosage: 18-54 UG, QID
     Route: 055
  5. TYVASO [Suspect]
     Active Substance: TREPROSTINIL
     Dosage: 36 UG, QID
     Route: 055
  6. TYVASO [Suspect]
     Active Substance: TREPROSTINIL
     Dosage: UNK
     Route: 055
  7. TYVASO [Suspect]
     Active Substance: TREPROSTINIL
     Dosage: 30 UG, QID
     Route: 055
  8. TYVASO [Suspect]
     Active Substance: TREPROSTINIL
     Dosage: 24 UG, QID
     Route: 055
  9. DULCOLAX (BISACODYL) [Concomitant]
     Active Substance: BISACODYL
     Indication: Constipation
     Dosage: UNK
     Route: 065
     Dates: start: 20210226
  10. DULCOLAX (BISACODYL) [Concomitant]
     Active Substance: BISACODYL
     Dosage: 2 DOSAGE FORM, QD
     Route: 065
     Dates: start: 20210227

REACTIONS (19)
  - Pallor [Unknown]
  - Pulmonary hypoperfusion [Unknown]
  - Oedema peripheral [Recovering/Resolving]
  - Oropharyngeal pain [Unknown]
  - Blood potassium decreased [Unknown]
  - Blood magnesium decreased [Unknown]
  - Dyspnoea [Unknown]
  - Hypoacusis [Unknown]
  - Asthenia [Unknown]
  - Headache [Not Recovered/Not Resolved]
  - Haemoptysis [Unknown]
  - Haematochezia [Unknown]
  - Flushing [Unknown]
  - Nausea [Unknown]
  - Insomnia [Unknown]
  - Constipation [Unknown]
  - Chills [Unknown]
  - Fatigue [Unknown]
  - Dyspnoea exertional [Not Recovered/Not Resolved]

NARRATIVE: CASE EVENT DATE: 20210129
